FAERS Safety Report 13755734 (Version 3)
Quarter: 2017Q4

REPORT INFORMATION
  Report Type: Report from Study
  Country: BR (occurrence: BR)
  Receive Date: 20170714
  Receipt Date: 20171106
  Transmission Date: 20180320
  Serious: Yes (Other)
  Sender: FDA-Public Use
  Company Number: BR-JNJFOC-20161003372

PATIENT
  Age: 63 Year
  Sex: Female

DRUGS (4)
  1. LOSARTAN. [Concomitant]
     Active Substance: LOSARTAN
     Route: 065
  2. REVANGE [Concomitant]
  3. VIMOVO [Concomitant]
     Active Substance: ESOMEPRAZOLE MAGNESIUM\NAPROXEN
     Route: 065
  4. STELARA [Suspect]
     Active Substance: USTEKINUMAB
     Indication: PSORIASIS
     Route: 058
     Dates: start: 20151218

REACTIONS (8)
  - Psoriatic arthropathy [Unknown]
  - Spinal disorder [Not Recovered/Not Resolved]
  - Pain [Recovered/Resolved]
  - Cholelithiasis [Unknown]
  - Cardiac disorder [Unknown]
  - Drug dose omission [Unknown]
  - Psoriasis [Not Recovered/Not Resolved]
  - Renal cancer [Unknown]

NARRATIVE: CASE EVENT DATE: 201710
